FAERS Safety Report 10170602 (Version 1)
Quarter: 2014Q2

REPORT INFORMATION
  Report Type: Spontaneous
  Country: IN (occurrence: IN)
  Receive Date: 20140513
  Receipt Date: 20140513
  Transmission Date: 20141212
  Serious: Yes (Hospitalization, Other)
  Sender: FDA-Public Use
  Company Number: IN-009507513-1405IND005927

PATIENT
  Age: 57 Year
  Sex: Male
  Weight: 70 kg

DRUGS (3)
  1. JANUMET [Suspect]
     Indication: DIABETES MELLITUS
     Dosage: DOSE REPORTED AS ^2/DAY^, BID
     Route: 048
  2. CYCLOPHOSPHAMIDE (+) DEXAMETHASONE (+) VINCRISTINE SULFATE [Concomitant]
  3. CHOLESTEROL [Concomitant]

REACTIONS (2)
  - Paralysis [Recovered/Resolved]
  - Hypoglycaemia [Recovered/Resolved]
